FAERS Safety Report 8766492 (Version 1)
Quarter: 2012Q4

REPORT INFORMATION
  Report Type: 
  Country: BR (occurrence: BR)
  Receive Date: 20120904
  Receipt Date: 20120904
  Transmission Date: 20130627
  Serious: Yes (Other)
  Sender: FDA-Public Use
  Company Number: BR-AMGEN-BRASP2012054770

PATIENT
  Age: 52 Year
  Weight: 90 kg

DRUGS (10)
  1. MIMPARA [Suspect]
     Indication: HYPERPARATHYROIDISM
     Dosage: 30 mg, qd
     Route: 048
     Dates: start: 201205, end: 20120813
  2. TEGRETOL [Concomitant]
     Indication: DIABETIC NEUROPATHY
     Dosage: 2 DF, qd
     Route: 048
     Dates: start: 2003
  3. AMLODIPINE [Concomitant]
     Indication: HYPERTENSION
     Dosage: 10 mg, qd
     Route: 048
     Dates: start: 2003
  4. COMPLEX B                          /00653501/ [Concomitant]
     Dosage: 1 DF, qd
     Route: 048
     Dates: start: 2003
  5. FOLIC ACID [Concomitant]
     Dosage: 1 DF, qd
     Route: 048
     Dates: start: 2003
  6. RENAGEL                            /01459901/ [Concomitant]
     Dosage: 9 DF, qd
     Route: 048
     Dates: start: 2003
  7. AAS [Concomitant]
     Dosage: 2 DF, qd
     Route: 048
     Dates: start: 2003
  8. NORIPURUM [Concomitant]
     Dosage: UNK UNK, qwk
     Route: 058
     Dates: start: 2003
  9. HEMAX                              /00909301/ [Concomitant]
     Dosage: UNK UNK, 3 times/wk
     Route: 058
     Dates: start: 2003
  10. INSULIN [Concomitant]
     Indication: DIABETES MELLITUS
     Dosage: 30 U/L, UNK
     Route: 058
     Dates: start: 2003

REACTIONS (3)
  - Blood parathyroid hormone increased [Not Recovered/Not Resolved]
  - Drug ineffective [Not Recovered/Not Resolved]
  - Oedema peripheral [Not Recovered/Not Resolved]
